FAERS Safety Report 6511314-3 (Version None)
Quarter: 2009Q4

REPORT INFORMATION
  Report Type: 
  Country: None (occurrence: None)
  Receive Date: 20091222
  Receipt Date: 20090326
  Transmission Date: 20100525
  Serious: No
  Sender: FDA-Public Use
  Company Number: US-ASTRAZENECA-2009UW07856

PATIENT
  Age: 63 Year
  Sex: Male
  Weight: 95.3 kg

DRUGS (4)
  1. CRESTOR [Suspect]
     Route: 048
     Dates: start: 20070101
  2. ASPIRIN [Concomitant]
  3. TOPROL-XL [Concomitant]
  4. TRICOR [Concomitant]

REACTIONS (1)
  - INFLUENZA LIKE ILLNESS [None]
